FAERS Safety Report 7661281 (Version 3)
Quarter: 2014Q1

REPORT INFORMATION
  Report Type: Spontaneous
  Country: US (occurrence: US)
  Receive Date: 20101109
  Receipt Date: 20140122
  Transmission Date: 20141002
  Serious: Yes (Hospitalization, Other)
  Sender: FDA-Public Use
  Company Number: US-BAYER-201039822NA

PATIENT
  Age: 30 Year
  Sex: Female
  Weight: 45.35 kg

DRUGS (3)
  1. YASMIN [Suspect]
  2. LEVAQUIN [Concomitant]
  3. FLAGYL [Concomitant]

REACTIONS (5)
  - Gallbladder disorder [Unknown]
  - Cholecystitis chronic [None]
  - Abdominal discomfort [Unknown]
  - Dyspepsia [Unknown]
  - Biliary colic [None]
